FAERS Safety Report 23772442 (Version 1)
Quarter: 2024Q2

REPORT INFORMATION
  Report Type: Spontaneous
  Country: DE (occurrence: DE)
  Receive Date: 20240423
  Receipt Date: 20240423
  Transmission Date: 20240715
  Serious: Yes (Other)
  Sender: FDA-Public Use
  Company Number: DE-ABBVIE-5727692

PATIENT
  Age: 46 Year
  Sex: Male
  Weight: 120 kg

DRUGS (2)
  1. VENCLEXTA [Suspect]
     Active Substance: VENETOCLAX
     Indication: Acute myeloid leukaemia
     Route: 048
     Dates: start: 20240408, end: 20240410
  2. AZACITIDINE [Suspect]
     Active Substance: AZACITIDINE
     Indication: Product used for unknown indication
     Route: 048
     Dates: start: 20240408, end: 20240408

REACTIONS (4)
  - Cerebrovascular accident [Recovered/Resolved]
  - Pupillary disorder [Unknown]
  - Confusional state [Unknown]
  - Slow speech [Unknown]

NARRATIVE: CASE EVENT DATE: 20240401
